FAERS Safety Report 18745491 (Version 2)
Quarter: 2021Q1

REPORT INFORMATION
  Report Type: Spontaneous
  Country: US (occurrence: US)
  Receive Date: 20210115
  Receipt Date: 20210128
  Transmission Date: 20210419
  Serious: Yes (Congenital Anomaly, Other)
  Sender: FDA-Public Use
  Company Number: US-GLAXOSMITHKLINE-US2021GSK001847

PATIENT

DRUGS (6)
  1. BELIMUMAB [Suspect]
     Active Substance: BELIMUMAB
     Indication: LUPUS NEPHRITIS
     Dosage: UNK
     Route: 064
  2. HYDROXYCHLOROQUINE [Suspect]
     Active Substance: HYDROXYCHLOROQUINE
     Indication: LUPUS NEPHRITIS
     Dosage: UNK
     Route: 064
  3. ASPIRIN LOW DOSE [Suspect]
     Active Substance: ASPIRIN
     Indication: LUPUS NEPHRITIS
     Dosage: UNK
     Route: 064
  4. NIFEDIPINE. [Suspect]
     Active Substance: NIFEDIPINE
     Indication: LUPUS NEPHRITIS
     Dosage: UNK
     Route: 064
  5. CYCLOPHOSPHAMIDE. [Suspect]
     Active Substance: CYCLOPHOSPHAMIDE
     Indication: LUPUS NEPHRITIS
     Dosage: UNK
     Route: 064
  6. AZATHIOPRINE. [Suspect]
     Active Substance: AZATHIOPRINE
     Indication: LUPUS NEPHRITIS
     Dosage: UNK
     Route: 064

REACTIONS (9)
  - Hemivertebra [Unknown]
  - Live birth [Unknown]
  - Congenital bowing of long bones [Unknown]
  - Cleft palate [Unknown]
  - Congenital nose malformation [Unknown]
  - Premature baby [Unknown]
  - Chondroectodermal dysplasia [Unknown]
  - Foetal exposure during pregnancy [Unknown]
  - Brachycephaly [Unknown]
